FAERS Safety Report 24229302 (Version 6)
Quarter: 2025Q1

REPORT INFORMATION
  Report Type: Report from Study
  Country: FR (occurrence: FR)
  Receive Date: 20240820
  Receipt Date: 20250305
  Transmission Date: 20250409
  Serious: Yes (Hospitalization, Other)
  Sender: NOVARTIS
  Company Number: FR-002147023-NVSC2024FR167629

PATIENT
  Sex: Female
  Weight: 66.2 kg

DRUGS (20)
  1. KISQALI [Suspect]
     Active Substance: RIBOCICLIB
     Indication: Hormone receptor positive HER2 negative breast cancer
     Route: 065
     Dates: start: 20240705
  2. KISQALI [Suspect]
     Active Substance: RIBOCICLIB
     Dosage: 400 MG, QD
     Route: 048
     Dates: start: 20240705
  3. KISQALI [Suspect]
     Active Substance: RIBOCICLIB
     Dosage: 400 MG, QD
     Route: 048
     Dates: start: 20240802, end: 20240805
  4. LEVOTHYROXINE [Concomitant]
     Active Substance: LEVOTHYROXINE
     Indication: Product used for unknown indication
     Route: 065
     Dates: start: 202408
  5. FEMARA [Concomitant]
     Active Substance: LETROZOLE
     Indication: Product used for unknown indication
     Dosage: 2.5 MG, QD (AT DISCHARGE FROM HOSPITAL)
     Route: 065
     Dates: start: 20240614
  6. FASLODEX [Concomitant]
     Active Substance: FULVESTRANT
     Indication: Product used for unknown indication
     Route: 030
  7. XGEVA [Concomitant]
     Active Substance: DENOSUMAB
     Indication: Product used for unknown indication
     Route: 065
     Dates: start: 20240614
  8. Cholecalcifer eg [Concomitant]
     Indication: Product used for unknown indication
     Dosage: 80000 IU, QW (BEFORE 05-AUG-2024, AT DISCHARGE FROM HOSPITAL)
     Route: 065
  9. Cholecalcifer eg [Concomitant]
     Dosage: 50000 IU, QMO (AT DISCHARGE FROM HOSPITAL)
     Route: 065
  10. NEFOPAM [Concomitant]
     Active Substance: NEFOPAM
     Indication: Product used for unknown indication
     Route: 065
  11. DOLIPRANE [Concomitant]
     Active Substance: ACETAMINOPHEN
     Indication: Product used for unknown indication
     Dosage: 500 MG, TID (BEFORE 05 AUG 2024)
     Route: 065
  12. FENTANYL [Concomitant]
     Active Substance: FENTANYL
     Indication: Product used for unknown indication
     Dosage: 25 UG, Q72H (BEFORE 5 AUG 2024, AT DISCHARGE FROM HOSPITAL)
     Route: 065
  13. FENTANYL [Concomitant]
     Active Substance: FENTANYL
     Dosage: 50 UG, Q72H (AT DISCHARGE FROM HOSPITAL)
     Route: 065
  14. LIDOCAINE [Concomitant]
     Active Substance: LIDOCAINE
     Indication: Product used for unknown indication
     Route: 065
  15. INNOHEP [Concomitant]
     Active Substance: TINZAPARIN SODIUM
     Indication: Product used for unknown indication
     Route: 065
  16. INNOHEP [Concomitant]
     Active Substance: TINZAPARIN SODIUM
     Route: 030
  17. ECONAZOLE [Concomitant]
     Active Substance: ECONAZOLE
     Indication: Product used for unknown indication
     Route: 065
  18. IBRANCE [Concomitant]
     Active Substance: PALBOCICLIB
     Indication: Product used for unknown indication
     Route: 065
  19. AMITRIPTYLINE HYDROCHLORIDE [Concomitant]
     Active Substance: AMITRIPTYLINE HYDROCHLORIDE
     Indication: Product used for unknown indication
     Route: 065
  20. HYDROCORTISONE [Concomitant]
     Active Substance: HYDROCORTISONE
     Indication: Product used for unknown indication
     Route: 065

REACTIONS (7)
  - Atrial fibrillation [Recovering/Resolving]
  - Electrocardiogram QT prolonged [Unknown]
  - Cardiac failure [Recovering/Resolving]
  - Oedema peripheral [Recovering/Resolving]
  - Injection site erythema [Unknown]
  - Vomiting [Recovered/Resolved]
  - Nausea [Recovered/Resolved]

NARRATIVE: CASE EVENT DATE: 20240805
